FAERS Safety Report 9801715 (Version 1)
Quarter: 2014Q1

REPORT INFORMATION
  Report Type: Spontaneous
  Country: US (occurrence: US)
  Receive Date: 20140107
  Receipt Date: 20140107
  Transmission Date: 20141002
  Serious: Yes (Hospitalization)
  Sender: FDA-Public Use
  Company Number: US-ABBVIE-14P-163-1186347-00

PATIENT
  Age: 20 Year
  Sex: Male
  Weight: 69.92 kg

DRUGS (1)
  1. DEPAKOTE [Suspect]
     Indication: CONVULSION
     Dates: start: 201309, end: 201309

REACTIONS (3)
  - Faecal incontinence [Recovered/Resolved]
  - Abasia [Recovered/Resolved]
  - Mental impairment [Recovered/Resolved]
